FAERS Safety Report 25644526 (Version 1)
Quarter: 2025Q3

REPORT INFORMATION
  Report Type: Spontaneous
  Country: US (occurrence: None)
  Receive Date: 20250804
  Receipt Date: 20250804
  Transmission Date: 20251021
  Serious: Yes (Hospitalization)
  Sender: FDA-CTU
  Company Number: None

PATIENT
  Sex: Female

DRUGS (5)
  1. MYCOPHENOLIC ACID [Suspect]
     Active Substance: MYCOPHENOLIC ACID
     Indication: Renal transplant
     Dosage: FREQUENCY : TWICE A DAY;?
     Route: 048
     Dates: start: 20220121
  2. LANTUS SOLOS INJ 100/ML [Concomitant]
  3. OZEMPIC INJ 2MG/3ML [Concomitant]
  4. ACROLIMUS [Concomitant]
  5. TACROLIMUS A [Concomitant]

REACTIONS (1)
  - Urinary tract infection [None]
